FAERS Safety Report 17679135 (Version 2)
Quarter: 2020Q2

REPORT INFORMATION
  Report Type: Report from Study
  Country: US (occurrence: US)
  Receive Date: 20200417
  Receipt Date: 20200629
  Transmission Date: 20200714
  Serious: Yes (Hospitalization, Other)
  Sender: FDA-Public Use
  Company Number: US-BAYER-2020-059167

PATIENT
  Age: 69 Year
  Sex: Male

DRUGS (1)
  1. BETASERON [Suspect]
     Active Substance: INTERFERON BETA-1B
     Indication: MULTIPLE SCLEROSIS
     Dosage: 0.25 MG, QOD
     Route: 058
     Dates: start: 20150130

REACTIONS (8)
  - Groin pain [None]
  - Blood test abnormal [None]
  - Acute coronary syndrome [None]
  - Blood disorder [Unknown]
  - Leukaemia [Unknown]
  - Urinary tract infection [None]
  - Product dose omission [None]
  - Depression [Not Recovered/Not Resolved]

NARRATIVE: CASE EVENT DATE: 202003
